FAERS Safety Report 18071025 (Version 2)
Quarter: 2021Q3

REPORT INFORMATION
  Report Type: Spontaneous
  Country: US (occurrence: US)
  Receive Date: 20200727
  Receipt Date: 20210706
  Transmission Date: 20211014
  Serious: Yes (Other)
  Sender: FDA-Public Use
  Company Number: US-GLAXOSMITHKLINE-US2020141882

PATIENT
  Sex: Male

DRUGS (3)
  1. ZANTAC [Suspect]
     Active Substance: RANITIDINE HYDROCHLORIDE
     Route: 065
     Dates: start: 19950115, end: 20100115
  2. ZANTAC [Suspect]
     Active Substance: RANITIDINE HYDROCHLORIDE
     Indication: ABDOMINAL DISCOMFORT
     Dosage: UNKNOWN AT THIS TIME, QD
     Route: 065
     Dates: start: 199001, end: 201701
  3. ZANTAC [Suspect]
     Active Substance: RANITIDINE HYDROCHLORIDE
     Indication: ABDOMINAL DISCOMFORT
     Dosage: UNKNOWN AT THIS TIME, QD
     Route: 065
     Dates: start: 199001, end: 201701

REACTIONS (4)
  - Thyroid cancer [Unknown]
  - Colon cancer [Unknown]
  - Colorectal cancer [Unknown]
  - Renal cancer [Unknown]
